FAERS Safety Report 14571337 (Version 1)
Quarter: 2018Q1

REPORT INFORMATION
  Report Type: Spontaneous
  Country: US (occurrence: US)
  Receive Date: 20180223
  Receipt Date: 20180223
  Transmission Date: 20180509
  Serious: No
  Sender: FDA-Public Use
  Company Number: None

PATIENT
  Sex: Female

DRUGS (4)
  1. FORTEO [Suspect]
     Active Substance: TERIPARATIDE
     Indication: RHEUMATOID ARTHRITIS
     Route: 058
     Dates: start: 201709
  2. FORTEO [Suspect]
     Active Substance: TERIPARATIDE
     Indication: OSTEOPOROSIS
     Route: 058
     Dates: start: 201709
  3. FORTEO [Suspect]
     Active Substance: TERIPARATIDE
     Indication: POLYMYOSITIS
     Route: 058
     Dates: start: 201709
  4. FORTEO [Suspect]
     Active Substance: TERIPARATIDE
     Indication: PSORIASIS
     Route: 058
     Dates: start: 201709

REACTIONS (2)
  - Muscle spasms [None]
  - Rhinorrhoea [None]
